FAERS Safety Report 10340885 (Version 2)
Quarter: 2014Q3

REPORT INFORMATION
  Report Type: Spontaneous
  Country: US (occurrence: US)
  Receive Date: 20140724
  Receipt Date: 20140724
  Transmission Date: 20150326
  Serious: No
  Sender: FDA-Public Use
  Company Number: US-MYLANLABS-2013S1013138

PATIENT

DRUGS (4)
  1. CALCIUM [Concomitant]
     Active Substance: CALCIUM
     Dosage: TAKEN LATER IN THE DAY FROM LEVOTHYROXINE
  2. LISINOPRIL-HYDROCHLOROTHIAZIDE [Concomitant]
     Active Substance: HYDROCHLOROTHIAZIDE\LISINOPRIL
     Dosage: LOW DOSE
  3. LEVOTHYROXINE SODIUM TABLETS, USP [Suspect]
     Active Substance: LEVOTHYROXINE SODIUM
     Indication: HYPOTHYROIDISM
     Dates: start: 2005
  4. MULTIVITAMIN [Concomitant]
     Active Substance: VITAMINS
     Dosage: TAKEN LATER IN THE DAY FROM LEVOTHYROXINE

REACTIONS (4)
  - Drug ineffective [Recovered/Resolved]
  - Asthenia [Not Recovered/Not Resolved]
  - Tri-iodothyronine free decreased [Recovered/Resolved]
  - Weight increased [Not Recovered/Not Resolved]
